FAERS Safety Report 16114147 (Version 1)
Quarter: 2019Q1

REPORT INFORMATION
  Report Type: Spontaneous
  Country: US (occurrence: US)
  Receive Date: 20190325
  Receipt Date: 20190325
  Transmission Date: 20190418
  Serious: No
  Sender: FDA-Public Use
  Company Number: US-ALLERGAN-1852282US

PATIENT
  Sex: Male

DRUGS (3)
  1. SIMBRINZA [Concomitant]
     Active Substance: BRIMONIDINE TARTRATE\BRINZOLAMIDE
  2. OTHER UNSPECIFIED MEDICATIONS FOR HER HEART [Concomitant]
     Indication: CARDIAC DISORDER
  3. LUMIGAN [Suspect]
     Active Substance: BIMATOPROST
     Indication: GLAUCOMA
     Dosage: UNKNOWN
     Route: 047
     Dates: start: 2008

REACTIONS (2)
  - Arteriosclerosis [Unknown]
  - Accidental exposure to product [Unknown]

NARRATIVE: CASE EVENT DATE: 2014
